FAERS Safety Report 8585433-4 (Version None)
Quarter: 2012Q3

REPORT INFORMATION
  Report Type: 
  Country: None (occurrence: None)
  Receive Date: 20120810
  Receipt Date: 20120802
  Transmission Date: 20120928
  Serious: Yes (Hospitalization, Other)
  Sender: FDA-Public Use
  Company Number: IN-ABBOTT-11P-078-0834565-00

PATIENT
  Age: 46 Year
  Sex: Female
  Weight: 39 kg

DRUGS (51)
  1. EFAVIRENZ [Concomitant]
     Indication: HIV INFECTION
     Route: 048
     Dates: start: 20070309, end: 20080921
  2. VITAMIN B12 15 MCG, FERROUS FUMARATE 0.3G, FOLIC ACID 1.5 MG [Concomitant]
     Indication: ROUTINE HEALTH MAINTENANCE
     Dosage: CAP
     Dates: start: 20101129
  3. OXETHAZINE 10 MG, AI(OH3) 291 MG, MGSOL 98 MG [Concomitant]
     Indication: PROPHYLAXIS OF NAUSEA AND VOMITING
     Route: 048
     Dates: start: 20120210
  4. LIDOCAINE [Concomitant]
     Indication: DRUG HYPERSENSITIVITY
     Dosage: GEL
     Dates: start: 20120223
  5. HEPARIN SODIUM BENZYL NICOTINATE [Concomitant]
     Indication: DRUG HYPERSENSITIVITY
     Dosage: 50 IU + 2MG/1GM
     Dates: start: 20120228
  6. RITONAVIR [Suspect]
     Indication: HIV INFECTION
     Route: 048
     Dates: start: 20080922, end: 20100325
  7. TENOFOVIR DF + EMTRICITABINE [Concomitant]
     Indication: HIV INFECTION
     Dosage: 200/300 MILLIGRAM
     Route: 048
     Dates: start: 20100811, end: 20110719
  8. NEBULIZATION WITH IPROTROPIUM BROMIDE 500MCG + LEVASALBUTAMOL 1.25MG/2 [Concomitant]
     Indication: DRUG HYPERSENSITIVITY
     Dosage: 500MCG + 1.25 MG/2.5 ML
     Dates: start: 20120223
  9. BECLOMETHASONE DIPROPIONAT 0.025% W/W + PHENYLEPHRINE GEL 0.1Y + LIDOC [Concomitant]
     Indication: DRUG HYPERSENSITIVITY
     Dosage: 0.025% + 0.1% + 2.5%
     Dates: start: 20120225
  10. DEXTROMETHORPHAN 10MG + TRIPROLIDINE HCL 1.25MG/5ML [Concomitant]
     Indication: COUGH
     Dosage: 10MG + 1.25MG/5ML
     Dates: start: 20120303
  11. ATAZANAVIR [Concomitant]
     Dates: start: 20120224
  12. TENOFOVIR DISOPROXIL FUMARATE [Concomitant]
     Indication: HIV INFECTION
     Route: 048
     Dates: start: 20080922, end: 20100802
  13. FOLIC ACID [Concomitant]
     Indication: PRODUCT USED FOR UNKNOWN INDICATION
     Dates: start: 20101129
  14. LAMIVUDINE + ADEFOVIR DIPIVOXIL [Concomitant]
     Dates: start: 20120208, end: 20120211
  15. TERBUTALINE EXPECTORANT [Concomitant]
     Indication: COUGH
     Dates: start: 20120208
  16. OTHER BLOOD PRODUCTS [Concomitant]
     Indication: ANAEMIA
     Dates: start: 20120209, end: 20120209
  17. OTHER BLOOD PRODUCTS [Concomitant]
     Dates: start: 20120210, end: 20120211
  18. PYRIDOXINE W/THIAMINE [Concomitant]
     Indication: PROPHYLAXIS
     Dates: start: 20120212, end: 20120212
  19. LAMIVUDINE + ZIDOVUDINE [Concomitant]
     Indication: HIV INFECTION
     Dosage: 150/300 MG
     Route: 048
     Dates: start: 20070309, end: 20100802
  20. VITAMIN B-12 [Concomitant]
     Indication: PRODUCT USED FOR UNKNOWN INDICATION
     Dates: start: 20101129
  21. ACETAMINOPHEN [Concomitant]
     Indication: ARTHRALGIA
     Dates: start: 20110923, end: 20110929
  22. SYP TERBUTALINE 2-5MG + BROMOXHEYINE 8MG+ GUAPHENSION 100MG [Concomitant]
     Indication: PRODUCTIVE COUGH
     Dosage: 2-5MG + 8MG + 100MG
     Dates: start: 20120223
  23. IV DEXTROSE WITH NORMAL SALINE + INS THIAMINE 100MG + PYRIDOXINE 100MG [Concomitant]
     Indication: DRUG HYPERSENSITIVITY
     Dosage: 100MG + 100 MG
     Dates: start: 20120223
  24. TERBUTALINE SULPHATE 1.25MG+ GUAPENSIN 50MG +BROMHEXINE 2MG/5ML [Concomitant]
     Indication: COUGH
     Dosage: 1.25MG + 50MG + 2MG/5ML
     Dates: start: 20120426
  25. TRIMETHOPRIM 160 MG, SULPHAMETHAXAZOLE 800 MG [Concomitant]
     Indication: ROUTINE HEALTH MAINTENANCE
     Dosage: TAB
     Dates: start: 20101129
  26. LAMIVUDINE + ADEFOVIR DIPIVOXIL [Concomitant]
     Dates: start: 20120211
  27. PYRIDOXINE W/THIAMINE [Concomitant]
     Indication: NEUROPATHY PERIPHERAL
  28. CLARITHROMYCIN [Concomitant]
     Indication: DRUG HYPERSENSITIVITY
     Dates: start: 20120223
  29. NEBULIZATION WITH BUDESONIDE [Concomitant]
     Indication: DRUG HYPERSENSITIVITY
     Dates: start: 20120223
  30. ATAZANAVIR [Concomitant]
     Indication: HIV INFECTION
     Route: 048
     Dates: start: 20080922, end: 20110719
  31. LAMIVUDINE + ZIDOVUDINE [Concomitant]
     Route: 048
     Dates: start: 20080922, end: 20100802
  32. ACETAMINOPHEN [Concomitant]
     Indication: HEADACHE
     Dosage: TABLET
     Dates: start: 20110909, end: 20110909
  33. SEITZ BATH WITH KMNO4 [Concomitant]
     Indication: DRUG HYPERSENSITIVITY
     Dates: start: 20120225
  34. DISODIUM HYDROGEN CITRATE [Concomitant]
     Indication: DRUG HYPERSENSITIVITY
     Dosage: 1.37GM / 5ML
     Dates: start: 20120225
  35. MAGNESIUM SULFATE [Concomitant]
     Indication: DRUG HYPERSENSITIVITY
     Dates: start: 20120228
  36. SODIUM BICARBONATE [Concomitant]
     Indication: RENAL IMPAIRMENT
     Dates: start: 20120402
  37. AMOROLFINE HYDROCHLORIDE [Concomitant]
     Indication: PRODUCT USED FOR UNKNOWN INDICATION
     Dates: start: 20110520
  38. FERROUS FUMARATE [Concomitant]
     Indication: PRODUCT USED FOR UNKNOWN INDICATION
     Dates: start: 20101129
  39. ACETAMINOPHEN [Concomitant]
     Indication: PYREXIA
     Dates: start: 20111007
  40. DIDANOSINE [Concomitant]
     Indication: HIV INFECTION
     Dates: start: 20120320
  41. OXETHAZINE 10 MG, AI(OH3) 291 MG, MGSOL 98 MG [Concomitant]
  42. LIG PARAFIN 3.75MG + MAGNESIUM HYDROXIDE 11.25/15 ML [Concomitant]
     Indication: DRUG HYPERSENSITIVITY
     Dosage: 3.75MG + 11.25/15 ML
     Dates: start: 20120223
  43. FERRIC AMMONIUM CITRATE 160MG+CYANOCOBALAMIN 7.5MCG+FOLIC ACID 0.5MG/M [Concomitant]
     Indication: ROUTINE HEALTH MAINTENANCE
     Dosage: 160MG + 7.5 MCG + 0.5MG/ML
     Dates: start: 20120320
  44. CASTOR OIL + GLYCERINE + ZINC OXIDE [Concomitant]
     Indication: PRURITUS
     Dates: start: 20120402
  45. DEXTROMETHORPHEN 10MG + CHLROPHENARAMINE MALATE 2MG/5ML [Concomitant]
     Indication: COUGH
     Dosage: 10MG + 2MG/5ML
     Dates: start: 20120509
  46. RITONAVIR [Suspect]
     Route: 048
     Dates: start: 20100326, end: 20100802
  47. RITONAVIR [Suspect]
     Dates: start: 20100811
  48. HYDROXYZINE HCL [Concomitant]
     Indication: PRODUCT USED FOR UNKNOWN INDICATION
     Dates: start: 20110520
  49. LAMIVUDINE + ADEFOVIR DIPIVOXIL [Concomitant]
     Indication: HIV INFECTION
     Dates: start: 20111230, end: 20120208
  50. TRAMADOL HCL [Concomitant]
     Indication: DRUG HYPERSENSITIVITY
     Dates: start: 20120224
  51. DICLOFENAC SODIUM [Concomitant]
     Indication: ARTHRALGIA
     Dates: start: 20120303

REACTIONS (7)
  - VIROLOGIC FAILURE [None]
  - HIV PERIPHERAL NEUROPATHY [None]
  - DRUG HYPERSENSITIVITY [None]
  - EXTRAPULMONARY TUBERCULOSIS [None]
  - PULMONARY TUBERCULOSIS [None]
  - LOWER RESPIRATORY TRACT INFECTION [None]
  - ANAEMIA [None]
